FAERS Safety Report 12655772 (Version 1)
Quarter: 2016Q3

REPORT INFORMATION
  Report Type: Spontaneous
  Country: US (occurrence: US)
  Receive Date: 20160816
  Receipt Date: 20160816
  Transmission Date: 20161109
  Serious: No
  Sender: FDA-Public Use
  Company Number: US-ROCHE-1701645

PATIENT
  Sex: Male

DRUGS (9)
  1. ALLOPURINOL. [Concomitant]
     Active Substance: ALLOPURINOL
     Route: 065
  2. OMEPRAZOLE. [Concomitant]
     Active Substance: OMEPRAZOLE
  3. PEGASYS [Suspect]
     Active Substance: PEGINTERFERON ALFA-2A
     Route: 058
     Dates: start: 20151010
  4. VITAMIN E [Concomitant]
     Active Substance: .ALPHA.-TOCOPHEROL
  5. PEGASYS [Suspect]
     Active Substance: PEGINTERFERON ALFA-2A
     Indication: ESSENTIAL THROMBOCYTHAEMIA
     Route: 058
     Dates: start: 20150722
  6. ASPIRIN. [Concomitant]
     Active Substance: ASPIRIN
  7. VITAMIN A [Concomitant]
     Active Substance: VITAMIN A
  8. VITAMIN C [Concomitant]
     Active Substance: ASCORBIC ACID
  9. FISH OIL [Concomitant]
     Active Substance: FISH OIL

REACTIONS (1)
  - White blood cell count decreased [Unknown]
